FAERS Safety Report 25187286 (Version 3)
Quarter: 2025Q2

REPORT INFORMATION
  Report Type: Report from Study
  Country: US (occurrence: US)
  Receive Date: 20250411
  Receipt Date: 20250604
  Transmission Date: 20250716
  Serious: Yes (Hospitalization, Other)
  Sender: SUNOVION
  Company Number: US-SMPA-2025SPA003937

PATIENT

DRUGS (2)
  1. ORGOVYX [Suspect]
     Active Substance: RELUGOLIX
     Indication: Prostate cancer
     Dosage: 120 MG, QD
     Route: 048
     Dates: start: 20250307
  2. Osteo-bi-flex [Concomitant]
     Dosage: 2 DF, BID (2 TABLETS DAILY)
     Route: 065

REACTIONS (6)
  - COVID-19 pneumonia [Unknown]
  - Fall [Unknown]
  - Prostatic specific antigen increased [Unknown]
  - Gait disturbance [Unknown]
  - Fatigue [Unknown]
  - Incorrect dose administered [Unknown]

NARRATIVE: CASE EVENT DATE: 20250328
